FAERS Safety Report 4467059-7 (Version None)
Quarter: 2004Q4

REPORT INFORMATION
  Report Type: 
  Country: None (occurrence: None)
  Receive Date: 20041004
  Receipt Date: 20040921
  Transmission Date: 20050328
  Serious: Yes (Other)
  Sender: FDA-Public Use
  Company Number: HQWYE177523SEP04

PATIENT
  Sex: Female

DRUGS (1)
  1. CORDARONE [Suspect]
     Indication: ATRIAL FIBRILLATION

REACTIONS (5)
  - ESSENTIAL TREMOR [None]
  - GUILLAIN-BARRE SYNDROME [None]
  - MYELOPATHY [None]
  - PARAPLEGIA [None]
  - POLYNEUROPATHY IDIOPATHIC PROGRESSIVE [None]
